FAERS Safety Report 18727303 (Version 1)
Quarter: 2021Q1

REPORT INFORMATION
  Report Type: Spontaneous
  Country: US (occurrence: US)
  Receive Date: 20210111
  Receipt Date: 20210111
  Transmission Date: 20210419
  Serious: No
  Sender: FDA-Public Use
  Company Number: US-ROCHE-2700231

PATIENT
  Age: 3 Year
  Sex: Male
  Weight: 13.17 kg

DRUGS (1)
  1. HEMLIBRA [Suspect]
     Active Substance: EMICIZUMAB-KXWH
     Indication: FACTOR VIII DEFICIENCY
     Dosage: ONGOING: UNKNOWN
     Route: 058
     Dates: start: 20191001

REACTIONS (1)
  - Coagulation factor VIII level increased [Not Recovered/Not Resolved]

NARRATIVE: CASE EVENT DATE: 202007
